FAERS Safety Report 16891672 (Version 5)
Quarter: 2020Q1

REPORT INFORMATION
  Report Type: Report from Study
  Country: US (occurrence: US)
  Receive Date: 20191007
  Receipt Date: 20200306
  Transmission Date: 20200409
  Serious: Yes (Hospitalization)
  Sender: FDA-Public Use
  Company Number: US-ACTELION-A-NJ2019-191444

PATIENT
  Age: 62 Year
  Sex: Male

DRUGS (1)
  1. OPSUMIT [Suspect]
     Active Substance: MACITENTAN
     Indication: PULMONARY ARTERIAL HYPERTENSION
     Dosage: 10 MG, QD
     Route: 048
     Dates: start: 20180507

REACTIONS (5)
  - Heart rate increased [Recovered/Resolved]
  - Malaise [Unknown]
  - Hospitalisation [Unknown]
  - Cardiac disorder [Unknown]
  - Cardiac operation [Unknown]

NARRATIVE: CASE EVENT DATE: 20190828
